FAERS Safety Report 5932104-6 (Version None)
Quarter: 2008Q4

REPORT INFORMATION
  Report Type: 
  Country: None (occurrence: None)
  Receive Date: 20081027
  Receipt Date: 20081018
  Transmission Date: 20090506
  Serious: Yes (Other)
  Sender: FDA-Public Use
  Company Number: BR-JNJCH-2008052637

PATIENT
  Sex: Male
  Weight: 75 kg

DRUGS (1)
  1. COOL MINT LISTERINE [Suspect]
     Indication: DENTAL DISORDER PROPHYLAXIS
     Dosage: TEXT:UNSPECIFIED
     Route: 048

REACTIONS (3)
  - APHTHOUS STOMATITIS [None]
  - APPLICATION SITE BURN [None]
  - MOUTH INJURY [None]
